FAERS Safety Report 6010484-3 (Version None)
Quarter: 2008Q4

REPORT INFORMATION
  Report Type: 
  Country: None (occurrence: None)
  Receive Date: 20081218
  Receipt Date: 20081211
  Transmission Date: 20090506
  Serious: Yes (Other)
  Sender: FDA-Public Use
  Company Number: US-BAYER-200840733NA

PATIENT
  Age: 21 Year
  Sex: Female

DRUGS (1)
  1. MIRENA [Suspect]
     Indication: CONTRACEPTION
     Route: 015
     Dates: start: 20070901, end: 20081208

REACTIONS (4)
  - ABORTION SPONTANEOUS [None]
  - GENITAL HAEMORRHAGE [None]
  - PREGNANCY TEST POSITIVE [None]
  - VAGINAL HAEMORRHAGE [None]
